FAERS Safety Report 6372518-6 (Version None)
Quarter: 2009Q3

REPORT INFORMATION
  Report Type: 
  Country: None (occurrence: None)
  Receive Date: 20090924
  Receipt Date: 20080917
  Transmission Date: 20100115
  Serious: No
  Sender: FDA-Public Use
  Company Number: US-ASTRAZENECA-2008UW20077

PATIENT
  Age: 14 Year
  Sex: Male

DRUGS (1)
  1. SEROQUEL [Suspect]
     Dosage: 200 TWO TIMES A DAY
     Route: 048

REACTIONS (2)
  - GALACTORRHOEA [None]
  - GYNAECOMASTIA [None]
